FAERS Safety Report 20394032 (Version 1)
Quarter: 2022Q1

REPORT INFORMATION
  Report Type: Spontaneous
  Country: CA (occurrence: CA)
  Receive Date: 20220129
  Receipt Date: 20220129
  Transmission Date: 20220424
  Serious: Yes (Other)
  Sender: FDA-Public Use
  Company Number: CA-MLMSERVICE-20220111-3310853-2

PATIENT
  Sex: Female

DRUGS (3)
  1. PAROXETINE [Interacting]
     Active Substance: PAROXETINE
     Indication: Mood swings
     Dosage: 10 MILLIGRAM, ONCE A DAY
     Route: 065
     Dates: start: 201802, end: 2018
  2. SUMATRIPTAN [Interacting]
     Active Substance: SUMATRIPTAN
     Indication: Migraine prophylaxis
     Dosage: 100 MILLIGRAM (AS NEEDED, DAILY)
     Route: 048
     Dates: start: 201701
  3. SUMATRIPTAN [Interacting]
     Active Substance: SUMATRIPTAN
     Indication: Migraine

REACTIONS (10)
  - Anxiety [Not Recovered/Not Resolved]
  - Condition aggravated [Unknown]
  - Depressive symptom [Unknown]
  - Drug-disease interaction [Unknown]
  - Drug interaction [Unknown]
  - Dyspepsia [Unknown]
  - Hot flush [Unknown]
  - Headache [Unknown]
  - Insomnia [Unknown]
  - Middle insomnia [Unknown]

NARRATIVE: CASE EVENT DATE: 20180101
